FAERS Safety Report 15410172 (Version 2)
Quarter: 2018Q3

REPORT INFORMATION
  Report Type: Spontaneous
  Country: HU (occurrence: HU)
  Receive Date: 20180921
  Receipt Date: 20180921
  Transmission Date: 20181010
  Serious: Yes (Death, Other)
  Sender: FDA-Public Use
  Company Number: HU-LUPIN PHARMACEUTICALS INC.-2018-06445

PATIENT
  Sex: Female

DRUGS (8)
  1. PENTEDRONE [Suspect]
     Active Substance: PENTEDRONE
     Indication: ACCIDENTAL EXPOSURE TO PRODUCT
  2. ALPRAZOLAM. [Suspect]
     Active Substance: ALPRAZOLAM
     Indication: ACCIDENTAL EXPOSURE TO PRODUCT
  3. QUETIAPINE. [Suspect]
     Active Substance: QUETIAPINE
     Indication: ACCIDENTAL EXPOSURE TO PRODUCT
  4. PENTEDRONE [Suspect]
     Active Substance: PENTEDRONE
     Indication: SUICIDAL IDEATION
     Dosage: UNK
     Route: 065
  5. VENLAFAXINE [Suspect]
     Active Substance: VENLAFAXINE HYDROCHLORIDE
     Indication: SUICIDAL IDEATION
     Dosage: UNK
     Route: 065
  6. VENLAFAXINE [Suspect]
     Active Substance: VENLAFAXINE HYDROCHLORIDE
     Indication: ACCIDENTAL EXPOSURE TO PRODUCT
  7. QUETIAPINE. [Suspect]
     Active Substance: QUETIAPINE
     Indication: SUICIDAL IDEATION
     Dosage: UNK
     Route: 065
  8. ALPRAZOLAM. [Suspect]
     Active Substance: ALPRAZOLAM
     Indication: SUICIDAL IDEATION
     Dosage: UNK
     Route: 065

REACTIONS (3)
  - Drug dependence [Unknown]
  - Overdose [Unknown]
  - Drug abuse [Unknown]
